FAERS Safety Report 21393536 (Version 1)
Quarter: 2022Q3

REPORT INFORMATION
  Report Type: Report from Study
  Country: US (occurrence: US)
  Receive Date: 20220929
  Receipt Date: 20220929
  Transmission Date: 20221027
  Serious: Yes (Hospitalization)
  Sender: FDA-Public Use
  Company Number: US-ABBVIE-4130487

PATIENT
  Age: 62 Year
  Sex: Female
  Weight: 57 kg

DRUGS (28)
  1. VENCLEXTA [Suspect]
     Active Substance: VENETOCLAX
     Indication: Product used for unknown indication
     Dosage: 50 MG, SINGLE, ORAL USE
     Route: 048
     Dates: start: 20210721, end: 20210721
  2. VENCLEXTA [Suspect]
     Active Substance: VENETOCLAX
     Indication: Product used for unknown indication
     Dosage: 70 MG, SINGLE, ONCE DAILY
     Route: 048
     Dates: start: 20210803, end: 20210803
  3. VENCLEXTA [Suspect]
     Active Substance: VENETOCLAX
     Indication: Product used for unknown indication
     Dosage: 20 MG, SINGLE, ORAL USE
     Route: 048
     Dates: start: 20210720, end: 20210720
  4. VENCLEXTA [Suspect]
     Active Substance: VENETOCLAX
     Indication: Product used for unknown indication
     Dosage: 70 MG, SINGLE, ONCE DAILY
     Route: 048
     Dates: start: 20210727, end: 20210727
  5. VENCLEXTA [Suspect]
     Active Substance: VENETOCLAX
     Indication: Product used for unknown indication
     Dosage: 10 MG, SINGLE, ONCE DAILY
     Route: 048
     Dates: start: 20210719, end: 20210719
  6. VENCLEXTA [Suspect]
     Active Substance: VENETOCLAX
     Indication: Product used for unknown indication
     Dosage: 70 MG, SINGLE, ONCE DAILY
     Route: 048
     Dates: start: 20210722, end: 20210723
  7. ACYCLOVIR [Concomitant]
     Active Substance: ACYCLOVIR
     Indication: Product used for unknown indication
     Dates: start: 20200818
  8. OXYCODONE [Concomitant]
     Active Substance: OXYCODONE
     Indication: Product used for unknown indication
     Dates: start: 2020
  9. VITAMIN B12 [Concomitant]
     Active Substance: CYANOCOBALAMIN
     Indication: Product used for unknown indication
     Dates: start: 2019
  10. POTASSIUM CHLORIDE [Concomitant]
     Active Substance: POTASSIUM CHLORIDE
     Indication: Product used for unknown indication
     Dates: start: 2015
  11. TIOTROPIUM BROMIDE [Concomitant]
     Active Substance: TIOTROPIUM BROMIDE
     Indication: Product used for unknown indication
     Dates: start: 2015
  12. DRONABINOL [Concomitant]
     Active Substance: DRONABINOL
     Indication: Product used for unknown indication
     Dates: start: 20200930
  13. SITAGLIPTIN [Concomitant]
     Active Substance: SITAGLIPTIN
     Indication: Product used for unknown indication
     Dates: start: 2017
  14. LOPERAMIDE [Concomitant]
     Active Substance: LOPERAMIDE
     Indication: Product used for unknown indication
     Dates: start: 20210303
  15. MONTELUKAST [Concomitant]
     Active Substance: MONTELUKAST SODIUM
     Indication: Product used for unknown indication
     Dates: start: 2019
  16. COLECALCIFEROL (COLECALCIFEROL) [Concomitant]
     Indication: Product used for unknown indication
     Dates: start: 2020, end: 202108
  17. ALBUTEROL [Concomitant]
     Active Substance: ALBUTEROL
     Indication: Product used for unknown indication
     Dates: start: 2020
  18. LACTOBACILLUS RHAMNOSUS [Concomitant]
     Active Substance: LACTOBACILLUS RHAMNOSUS
     Indication: Product used for unknown indication
     Dates: start: 2020
  19. NITROFURANTOIN [Concomitant]
     Active Substance: NITROFURANTOIN
     Indication: Product used for unknown indication
     Dates: start: 20210525
  20. OMEPRAZOLE [Concomitant]
     Active Substance: OMEPRAZOLE
     Indication: Product used for unknown indication
     Dates: start: 2015
  21. PROCHLORPERAZINE [Concomitant]
     Active Substance: PROCHLORPERAZINE
     Indication: Product used for unknown indication
     Dates: start: 20200828
  22. SILDENAFIL [Concomitant]
     Active Substance: SILDENAFIL
     Indication: Product used for unknown indication
     Dates: start: 20151126
  23. POSACONAZOLE [Concomitant]
     Active Substance: POSACONAZOLE
     Indication: Product used for unknown indication
     Dates: start: 20200818
  24. ALPRAZOLAM [Concomitant]
     Active Substance: ALPRAZOLAM
     Indication: Product used for unknown indication
     Dates: start: 2020
  25. SYMBICORT [Concomitant]
     Active Substance: BUDESONIDE\FORMOTEROL FUMARATE DIHYDRATE
     Indication: Product used for unknown indication
     Dates: start: 2015
  26. ATROPINE\DIPHENOXYLATE [Concomitant]
     Active Substance: ATROPINE\DIPHENOXYLATE
     Indication: Product used for unknown indication
     Dates: start: 20210304
  27. ONDANSETRON [Concomitant]
     Active Substance: ONDANSETRON
     Indication: Product used for unknown indication
     Dates: start: 20200818
  28. FUROSEMIDE [Concomitant]
     Active Substance: FUROSEMIDE
     Indication: Product used for unknown indication
     Dates: start: 2017

REACTIONS (6)
  - Urinary tract infection [Recovered/Resolved]
  - Feeling abnormal [Unknown]
  - Nephrolithiasis [Unknown]
  - Nephrolithiasis [Unknown]
  - Pyrexia [Unknown]
  - Feeling cold [Unknown]

NARRATIVE: CASE EVENT DATE: 20210101
